FAERS Safety Report 21528440 (Version 4)
Quarter: 2023Q4

REPORT INFORMATION
  Report Type: Spontaneous
  Country: GB (occurrence: GB)
  Receive Date: 20221031
  Receipt Date: 20231123
  Transmission Date: 20240110
  Serious: Yes (Death, Life-Threatening, Hospitalization, Other)
  Sender: FDA-Public Use
  Company Number: GB-Hikma Pharmaceuticals-GB-H14001-22-02661

PATIENT
  Age: 79 Year
  Sex: Female
  Weight: 53 kg

DRUGS (6)
  1. CARBOPLATIN [Suspect]
     Active Substance: CARBOPLATIN
     Indication: Anal cancer
     Dosage: AUC5, DAY 1 OF EACH 28 DAY CYCLE
     Route: 042
     Dates: start: 20220908, end: 20220927
  2. CARBOPLATIN [Suspect]
     Active Substance: CARBOPLATIN
     Dosage: UNKNOWN
     Route: 042
  3. RETIFANLIMAB [Suspect]
     Active Substance: RETIFANLIMAB
     Indication: Anal cancer
     Dosage: BLINDED, 500 MG
     Route: 042
     Dates: start: 20220908
  4. RETIFANLIMAB [Suspect]
     Active Substance: RETIFANLIMAB
     Dosage: BLINDED, 500 MG
     Route: 042
     Dates: start: 20221010
  5. PACLITAXEL [Suspect]
     Active Substance: PACLITAXEL
     Indication: Anal cancer
     Dosage: 80 MILLIGRAM/SQ. METER; DAY 1 OF EACH 28-DAY CYCLE
     Route: 042
     Dates: start: 20220908, end: 20220916
  6. APIXABAN 2.5 ZYDUS [Concomitant]
     Indication: Deep vein thrombosis
     Dosage: UNKNOWN
     Route: 065
     Dates: start: 20220927, end: 20221020

REACTIONS (15)
  - Anaemia [Recovered/Resolved]
  - Melaena [Recovered/Resolved]
  - Fall [Recovered/Resolved]
  - Malaise [Unknown]
  - Dizziness [Unknown]
  - Diarrhoea [Unknown]
  - C-reactive protein increased [Unknown]
  - Deep vein thrombosis [Unknown]
  - Bundle branch block right [Unknown]
  - Enterobacter infection [Unknown]
  - Dieulafoy^s vascular malformation [Unknown]
  - Pulmonary mass [Unknown]
  - Gastrointestinal angiectasia [Unknown]
  - Small intestinal haemorrhage [Unknown]
  - Disease progression [Fatal]

NARRATIVE: CASE EVENT DATE: 20220901
